FAERS Safety Report 25516676 (Version 1)
Quarter: 2025Q3

REPORT INFORMATION
  Report Type: Spontaneous
  Country: CA (occurrence: CA)
  Receive Date: 20250704
  Receipt Date: 20250704
  Transmission Date: 20251020
  Serious: Yes (Other)
  Sender: TEVA
  Company Number: CA-TEVA-VS-3346909

PATIENT
  Age: 51 Year

DRUGS (3)
  1. PREDNISONE [Suspect]
     Active Substance: PREDNISONE
     Indication: Rheumatoid arthritis
     Route: 065
  2. HYDROXYUREA [Suspect]
     Active Substance: HYDROXYUREA
     Indication: Rheumatoid arthritis
     Route: 065
  3. VIMOVO [Concomitant]
     Active Substance: ESOMEPRAZOLE MAGNESIUM\NAPROXEN
     Indication: Product used for unknown indication

REACTIONS (3)
  - Neutropenia [Unknown]
  - Eosinophil count abnormal [Unknown]
  - Off label use [Unknown]
